FAERS Safety Report 8564490-5 (Version None)
Quarter: 2012Q3

REPORT INFORMATION
  Report Type: 
  Country: None (occurrence: None)
  Receive Date: 20120803
  Receipt Date: 20120731
  Transmission Date: 20120928
  Serious: Yes (Death)
  Sender: FDA-Public Use
  Company Number: CO-PFIZER INC-2012188207

PATIENT
  Age: 80 Year
  Sex: Female

DRUGS (4)
  1. METFORMIN [Concomitant]
     Dosage: UNK
     Route: 065
  2. AMLODIPINE [Concomitant]
     Dosage: UNK
     Route: 065
  3. ENALAPRIL [Concomitant]
     Dosage: UNK
     Route: 065
  4. LIPITOR [Suspect]
     Indication: DYSLIPIDAEMIA
     Dosage: UNK
     Route: 065
     Dates: start: 20040830

REACTIONS (1)
  - DEATH [None]
